FAERS Safety Report 6477076-3 (Version None)
Quarter: 2009Q4

REPORT INFORMATION
  Report Type: 
  Country: None (occurrence: None)
  Receive Date: 20091204
  Receipt Date: 20091204
  Transmission Date: 20100525
  Serious: Yes (Hospitalization)
  Sender: FDA-Public Use
  Company Number: None

PATIENT
  Sex: Male
  Weight: 81.7 kg

DRUGS (17)
  1. AZACITIDINE 75MG/M2 [Suspect]
     Indication: ACUTE MYELOID LEUKAEMIA
     Dosage: 75MG/M2  QD S/C
     Route: 058
     Dates: start: 20090904, end: 20090910
  2. LENALIDOMIDE 5MG [Suspect]
  3. DEMECLOCYCLINE HCL [Concomitant]
  4. LASIX [Concomitant]
  5. NORCO [Concomitant]
  6. CLINDAMYCIN [Concomitant]
  7. DIFLUCAN [Concomitant]
  8. ACYCLOVIR [Concomitant]
  9. CYMBALTA [Concomitant]
  10. BENICAR [Concomitant]
  11. LEVOXYL [Concomitant]
  12. ANDROGEL [Concomitant]
  13. ORACEA [Concomitant]
  14. ALPRAZOLAM [Concomitant]
  15. AMBIEN [Concomitant]
  16. LEVITRA [Concomitant]
  17. ALLOPURINOL. [Concomitant]

REACTIONS (3)
  - BACK PAIN [None]
  - DELIRIUM [None]
  - PNEUMONIA [None]
